FAERS Safety Report 15488543 (Version 1)
Quarter: 2018Q4

REPORT INFORMATION
  Report Type: Spontaneous
  Country: US (occurrence: US)
  Receive Date: 20181003
  Receipt Date: 20181003
  Transmission Date: 20190205
  Serious: Yes (Hospitalization)
  Sender: FDA-Public Use
  Company Number: None

PATIENT
  Age: 63 Year
  Sex: Male

DRUGS (1)
  1. GRANIX [Suspect]
     Active Substance: TBO-FILGRASTIM
     Indication: AGRANULOCYTOSIS
     Dosage: ?          OTHER DOSE:450MCGX5DS A/CHEMO;OTHER FREQUENCY:EVERY OTHER WEEK;?
     Route: 058
     Dates: start: 20180911

REACTIONS (1)
  - Malnutrition [None]
